FAERS Safety Report 6787923-3 (Version None)
Quarter: 2010Q2

REPORT INFORMATION
  Report Type: 
  Country: None (occurrence: None)
  Receive Date: 20100623
  Receipt Date: 20070823
  Transmission Date: 20101027
  Serious: No
  Sender: FDA-Public Use
  Company Number: US-PFIZER INC-2007071338

PATIENT
  Sex: Female

DRUGS (3)
  1. SOLU-MEDROL [Suspect]
     Route: 042
     Dates: start: 20070301
  2. PREDNISONE [Suspect]
     Dates: start: 20070201, end: 20070401
  3. CORTICOSTEROIDS [Concomitant]

REACTIONS (2)
  - PAIN [None]
  - WHITE BLOOD CELL COUNT DECREASED [None]
